FAERS Safety Report 7811776-5 (Version None)
Quarter: 2011Q4

REPORT INFORMATION
  Report Type: 
  Country: None (occurrence: None)
  Receive Date: 20111013
  Receipt Date: 20110929
  Transmission Date: 20120403
  Serious: Yes (Other)
  Sender: FDA-Public Use
  Company Number: US-ELI_LILLY_AND_COMPANY-US201110000264

PATIENT
  Sex: Female

DRUGS (5)
  1. VITAMIN D [Concomitant]
     Dosage: 5000 DF, WEEKLY (1/W)
  2. EVISTA [Suspect]
     Indication: OSTEOPOROSIS
     Dosage: 60 MG, QD
     Dates: start: 20090101
  3. OMEPRAZOLE [Concomitant]
     Dosage: UNK, QD
  4. CALCIUM CARBONATE [Concomitant]
     Dosage: UNK, QD
  5. DIGOXIN [Concomitant]
     Dosage: UNK, QD

REACTIONS (6)
  - CARDIAC FIBRILLATION [None]
  - PALPITATIONS [None]
  - CARDIOMEGALY [None]
  - LUNG DISORDER [None]
  - CARDIAC FAILURE CONGESTIVE [None]
  - THROMBOSIS [None]
